FAERS Safety Report 9388093 (Version 1)
Quarter: 2013Q3

REPORT INFORMATION
  Report Type: Spontaneous
  Country: US (occurrence: None)
  Receive Date: 20130703
  Receipt Date: 20130703
  Transmission Date: 20140515
  Serious: Yes (Other)
  Sender: FDA-Public Use
  Company Number: USA/USA/13/0030357

PATIENT
  Age: 27 Year
  Sex: Male

DRUGS (6)
  1. FLUOXETINE [Suspect]
     Indication: DEPRESSION
  2. ZIPRASIDONE [Suspect]
     Indication: DEPRESSION
  3. QUETIAPINE FUMARATE [Suspect]
     Indication: DEPRESSION
     Dosage: STOPPED
  4. OLANZAPINE [Suspect]
     Indication: DEPRESSION
     Dosage: STOPPED
  5. ARIPIPRAZOLE [Suspect]
     Indication: DEPRESSION
     Dosage: 45 MG, UNKNOWN - STOPPED
  6. LURASIDONE [Suspect]
     Indication: DEPRESSION

REACTIONS (15)
  - Oromandibular dystonia [None]
  - Drug interaction [None]
  - Weight increased [None]
  - Dystonia [None]
  - Therapeutic response decreased [None]
  - Respiratory disorder [None]
  - Swollen tongue [None]
  - Social avoidant behaviour [None]
  - Paranoia [None]
  - Hallucination, auditory [None]
  - Psychotic disorder [None]
  - Activities of daily living impaired [None]
  - Dysphagia [None]
  - Speech disorder [None]
  - Product quality issue [None]
